FAERS Safety Report 6709272 (Version 22)
Quarter: 2014Q3

REPORT INFORMATION
  Report Type: Spontaneous
  Country: US (occurrence: US)
  Receive Date: 20080724
  Receipt Date: 20140724
  Transmission Date: 20150326
  Serious: Yes (Other)
  Sender: FDA-Public Use
  Company Number: PHEH2008US06333

PATIENT
  Age: 41 Year
  Sex: Female
  Weight: 74.1 kg

DRUGS (22)
  1. ZOMETA [Suspect]
     Active Substance: ZOLEDRONIC ACID
     Route: 041
     Dates: start: 2004, end: 200812
  2. PERIDEX [Concomitant]
     Active Substance: CHLORHEXIDINE GLUCONATE
  3. CYTOXAN [Concomitant]
     Active Substance: CYCLOPHOSPHAMIDE
  4. OXYCONTIN [Concomitant]
     Active Substance: OXYCODONE HYDROCHLORIDE
     Route: 048
  5. VICODIN [Concomitant]
     Active Substance: ACETAMINOPHEN\HYDROCODONE BITARTRATE
     Route: 048
  6. TYLOX [Concomitant]
     Active Substance: ACETAMINOPHEN\OXYCODONE HYDROCHLORIDE
     Route: 048
  7. REGLAN [Concomitant]
     Active Substance: METOCLOPRAMIDE HYDROCHLORIDE
     Dosage: 10 MG, TID
  8. ATIVAN [Concomitant]
     Active Substance: LORAZEPAM
  9. ACETAMINOPHEN. [Concomitant]
     Active Substance: ACETAMINOPHEN
  10. AROMASIN [Concomitant]
     Active Substance: EXEMESTANE
     Indication: BREAST CANCER
     Dosage: 25 MG, QD
     Route: 048
  11. TAMOXIFEN [Concomitant]
     Active Substance: TAMOXIFEN
  12. TAXOL [Concomitant]
     Active Substance: PACLITAXEL
  13. ARIMIDEX [Concomitant]
     Active Substance: ANASTROZOLE
     Dosage: 1 MG
     Route: 048
  14. VANCOMYCIN [Concomitant]
     Active Substance: VANCOMYCIN
     Dosage: 1.5 GM, QD
     Route: 042
  15. FEMARA [Concomitant]
     Active Substance: LETROZOLE
  16. NAVELBINE ^ASTA MEDICA^ [Concomitant]
  17. AREDIA [Suspect]
     Active Substance: PAMIDRONATE DISODIUM
     Route: 041
     Dates: start: 2004, end: 200812
  18. ADRIAMYCIN [Concomitant]
     Active Substance: DOXORUBICIN HYDROCHLORIDE
  19. ZOLOFT [Concomitant]
     Active Substance: SERTRALINE HYDROCHLORIDE
     Dosage: 100 MG, QD
  20. OXYCODONE [Concomitant]
     Active Substance: OXYCODONE
  21. CIPRO [Concomitant]
     Active Substance: CIPROFLOXACIN HYDROCHLORIDE
     Dosage: 500 MG
  22. CHLORHEXIDINE [Concomitant]
     Active Substance: CHLORHEXIDINE

REACTIONS (72)
  - Intervertebral disc disorder [Unknown]
  - Pulmonary congestion [Unknown]
  - Polyarthritis [Unknown]
  - Injury [Unknown]
  - Oral dysaesthesia [Unknown]
  - Osteosclerosis [Unknown]
  - Vertebral foraminal stenosis [Unknown]
  - Lymphadenopathy [Unknown]
  - Pubis fracture [Unknown]
  - Anxiety [Unknown]
  - Swelling face [Unknown]
  - Bone formation increased [Unknown]
  - Gait disturbance [Unknown]
  - Musculoskeletal discomfort [Unknown]
  - Glaucoma [Unknown]
  - Joint stiffness [Unknown]
  - Arthropathy [Unknown]
  - Metastases to bone [Unknown]
  - Renal cyst [Unknown]
  - Pain in jaw [Unknown]
  - Pain [Unknown]
  - Tooth disorder [Unknown]
  - Incision site oedema [Unknown]
  - Pyrexia [Unknown]
  - Osteomyelitis chronic [Unknown]
  - Muscular weakness [Unknown]
  - Osteonecrosis of jaw [Unknown]
  - Emotional distress [Unknown]
  - Denture wearer [Unknown]
  - Pulmonary fibrosis [Unknown]
  - Osteolysis [Unknown]
  - Back pain [Unknown]
  - Dizziness [Unknown]
  - Haemorrhage [Unknown]
  - Pulmonary mass [Unknown]
  - Hypophagia [Unknown]
  - Anhedonia [Unknown]
  - Jaw fracture [Unknown]
  - Burns third degree [Unknown]
  - Gout [Unknown]
  - Asthenia [Unknown]
  - Bone disorder [Unknown]
  - Photopsia [Unknown]
  - Pelvic pain [Unknown]
  - Atelectasis [Unknown]
  - Skin ulcer [Unknown]
  - Post procedural complication [Unknown]
  - Hypoaesthesia [Unknown]
  - Discomfort [Unknown]
  - Weight decreased [Unknown]
  - Pleural fibrosis [Unknown]
  - Intervertebral disc protrusion [Unknown]
  - Pain in extremity [Unknown]
  - Metastases to bone marrow [Unknown]
  - Hernia [Unknown]
  - Chills [Unknown]
  - Life expectancy shortened [Unknown]
  - Physical disability [Unknown]
  - Skin necrosis [Unknown]
  - Weight increased [Unknown]
  - Metastases to spine [Unknown]
  - Anaemia [Unknown]
  - Wound [Unknown]
  - Wound infection [Unknown]
  - Arthralgia [Unknown]
  - Hepatic steatosis [Unknown]
  - Muscle oedema [Unknown]
  - Scar [Unknown]
  - Incision site erythema [Unknown]
  - Vitreous floaters [Unknown]
  - Radiation necrosis [Unknown]
  - Bone pain [Unknown]

NARRATIVE: CASE EVENT DATE: 20040722
